FAERS Safety Report 21292434 (Version 1)
Quarter: 2022Q3

REPORT INFORMATION
  Report Type: Spontaneous
  Country: DE (occurrence: DE)
  Receive Date: 20220905
  Receipt Date: 20220905
  Transmission Date: 20221027
  Serious: Yes (Other)
  Sender: FDA-Public Use
  Company Number: None

PATIENT
  Age: 61 Year
  Sex: Female
  Weight: 61 kg

DRUGS (1)
  1. BEMPEDOIC ACID\EZETIMIBE [Suspect]
     Active Substance: BEMPEDOIC ACID\EZETIMIBE
     Indication: Therapy change
     Dosage: 1 DF, QD 180MG/10MG,  0-0-1-0
     Route: 048
     Dates: start: 20220819, end: 20220821

REACTIONS (5)
  - Blood pressure increased [Recovered/Resolved]
  - Anaphylactic reaction [Recovered/Resolved]
  - Skin warm [Recovered/Resolved]
  - Rash erythematous [Recovered/Resolved]
  - Hypersensitivity [Recovered/Resolved]

NARRATIVE: CASE EVENT DATE: 20220820
